FAERS Safety Report 9441774 (Version 1)
Quarter: 2013Q3

REPORT INFORMATION
  Report Type: Spontaneous
  Country: CA (occurrence: CA)
  Receive Date: 20130806
  Receipt Date: 20130806
  Transmission Date: 20140515
  Serious: Yes (Death)
  Sender: FDA-Public Use
  Company Number: CA-AMGEN-CANSP2013054213

PATIENT
  Age: 50 Year
  Sex: Female

DRUGS (1)
  1. SENSIPAR [Suspect]
     Indication: RENAL FAILURE CHRONIC
     Dosage: 30 MG, UNK
     Route: 065

REACTIONS (1)
  - Death [Fatal]
